FAERS Safety Report 4899077-9 (Version None)
Quarter: 2006Q1

REPORT INFORMATION
  Report Type: 
  Country: None (occurrence: None)
  Receive Date: 20060202
  Receipt Date: 20060124
  Transmission Date: 20060701
  Serious: Yes (Other)
  Sender: FDA-Public Use
  Company Number: PHRM2006FR00639

PATIENT
  Age: 70 Year
  Sex: Male

DRUGS (2)
  1. COTAREG [Suspect]
     Indication: HYPERTENSION
     Route: 048
  2. CHOLESTEROL- AND TRIGLYCERIDE REDUCERS [Suspect]

REACTIONS (1)
  - BLOOD CREATINE PHOSPHOKINASE INCREASED [None]
